FAERS Safety Report 5386295-9 (Version None)
Quarter: 2007Q3

REPORT INFORMATION
  Report Type: 
  Country: None (occurrence: None)
  Receive Date: 20070710
  Receipt Date: 20070710
  Transmission Date: 20080115
  Serious: Yes (Other)
  Sender: FDA-Public Use
  Company Number: None

PATIENT
  Age: 3 Year
  Sex: Female
  Weight: 11 kg

DRUGS (1)
  1. REGLAN [Suspect]
     Indication: GASTROINTESTINAL TUBE INSERTION
     Dosage: 2 ML 4 TIMES DAILY OTHER
     Dates: start: 20070619, end: 20070702

REACTIONS (2)
  - CONDITION AGGRAVATED [None]
  - CONVULSION [None]
